FAERS Safety Report 9383360 (Version 3)
Quarter: 2014Q4

REPORT INFORMATION
  Report Type: Report from Study
  Country: US (occurrence: US)
  Receive Date: 20130704
  Receipt Date: 20141226
  Transmission Date: 20150529
  Serious: Yes (Hospitalization)
  Sender: FDA-Public Use
  Company Number: US-ROCHE-1243491

PATIENT
  Age: 72 Year
  Sex: Female
  Weight: 80.4 kg

DRUGS (2)
  1. CCI-779 (TEMSIROLIMUS) [Suspect]
     Active Substance: TEMSIROLIMUS
     Indication: NEOPLASM MALIGNANT
     Dosage: ON DAYS 1,8, 15, 22
     Route: 042
     Dates: start: 20101213
  2. BEVACIZUMAB [Suspect]
     Active Substance: BEVACIZUMAB
     Indication: NEOPLASM MALIGNANT
     Dosage: OVER 30-90 MIN ON DAYS 1 AND 15,  LAST ADMINISTERED DATE: 19/FEB/2013
     Route: 042
     Dates: start: 20101213

REACTIONS (7)
  - Syncope [Recovered/Resolved with Sequelae]
  - Acute kidney injury [Unknown]
  - Hypokalaemia [Recovered/Resolved]
  - Acute kidney injury [Recovered/Resolved]
  - Sepsis [Recovered/Resolved]
  - Dehydration [Recovered/Resolved]
  - Diarrhoea [Recovered/Resolved]

NARRATIVE: CASE EVENT DATE: 20120315
